FAERS Safety Report 9686089 (Version 1)
Quarter: 2013Q4

REPORT INFORMATION
  Report Type: Spontaneous
  Country: US (occurrence: US)
  Receive Date: 20131113
  Receipt Date: 20131113
  Transmission Date: 20140711
  Serious: No
  Sender: FDA-Public Use
  Company Number: US-009507513-1311USA004999

PATIENT
  Sex: Male

DRUGS (2)
  1. MIRALAX [Suspect]
     Indication: COLONOSCOPY
     Dosage: 119 G, BID
     Route: 048
     Dates: start: 20131029
  2. DULCOLAX [Concomitant]
     Indication: PRODUCT USED FOR UNKNOWN INDICATION
     Dosage: 2 DF, UNKNOWN

REACTIONS (3)
  - Drug ineffective [Unknown]
  - Overdose [Unknown]
  - Off label use [Unknown]
